FAERS Safety Report 6973557-4 (Version None)
Quarter: 2010Q3

REPORT INFORMATION
  Report Type: 
  Country: None (occurrence: None)
  Receive Date: 20100909
  Receipt Date: 20100902
  Transmission Date: 20110219
  Serious: Yes (Other)
  Sender: FDA-Public Use
  Company Number: CA-SOLVAY-00210005470

PATIENT
  Age: 79 Year
  Sex: Female

DRUGS (2)
  1. PERINDOPRIL ERBUMINE [Suspect]
     Indication: HYPERTENSION
     Dosage: DAILY DOSE: 4 MILLIGRAM(S)
     Route: 048
     Dates: start: 20100701, end: 20100804
  2. THYROID HORMONES [Concomitant]
     Indication: PRODUCT USED FOR UNKNOWN INDICATION
     Dosage: DAILY DOSE:  UNKNOWN
     Route: 065
     Dates: start: 20050101

REACTIONS (13)
  - ARTHRALGIA [None]
  - COUGH [None]
  - DECREASED APPETITE [None]
  - DEPRESSION [None]
  - DYSURIA [None]
  - FALL [None]
  - MALAISE [None]
  - MYALGIA [None]
  - POLLAKIURIA [None]
  - ROAD TRAFFIC ACCIDENT [None]
  - SINUS CONGESTION [None]
  - WEIGHT DECREASED [None]
  - WOUND COMPLICATION [None]
